FAERS Safety Report 9818016 (Version 1)
Quarter: 2014Q1

REPORT INFORMATION
  Report Type: Spontaneous
  Country: US (occurrence: US)
  Receive Date: 20140115
  Receipt Date: 20140115
  Transmission Date: 20141002
  Serious: Yes (Other)
  Sender: FDA-Public Use
  Company Number: US-RB-061976-14

PATIENT
  Age: 2 Year
  Sex: Female

DRUGS (1)
  1. DELSYM CHILD GRAPE [Suspect]
     Indication: PRODUCT USED FOR UNKNOWN INDICATION
     Dosage: TOOK 1 1/4 ML ON 06/JAN/2014.
     Route: 048
     Dates: start: 20140106

REACTIONS (7)
  - Wheezing [Recovered/Resolved]
  - Hypersensitivity [Recovered/Resolved]
  - Erythema [Recovered/Resolved]
  - Dyspnoea [Recovered/Resolved]
  - Cough [Recovered/Resolved]
  - Accidental exposure to product by child [Unknown]
  - Expired drug administered [Unknown]
